FAERS Safety Report 12292674 (Version 1)
Quarter: 2016Q2

REPORT INFORMATION
  Report Type: Report from Study
  Country: US (occurrence: US)
  Receive Date: 20160421
  Receipt Date: 20160421
  Transmission Date: 20160815
  Serious: No
  Sender: FDA-Public Use
  Company Number: US-AMGEN-USASL2016025472

PATIENT
  Age: 77 Year
  Sex: Female

DRUGS (1)
  1. REPATHA [Suspect]
     Active Substance: EVOLOCUMAB
     Indication: DYSLIPIDAEMIA
     Dosage: 140 MG, Q2WK
     Route: 065
     Dates: start: 201511

REACTIONS (12)
  - Fatigue [Not Recovered/Not Resolved]
  - Nasopharyngitis [Unknown]
  - Injection site discolouration [Not Recovered/Not Resolved]
  - Sneezing [Unknown]
  - Injection site bruising [Unknown]
  - Throat irritation [Unknown]
  - Dysphonia [Unknown]
  - Rhinorrhoea [Unknown]
  - Pain [Unknown]
  - Hypersomnia [Not Recovered/Not Resolved]
  - Cough [Unknown]
  - Feeling abnormal [Unknown]

NARRATIVE: CASE EVENT DATE: 20160218
